FAERS Safety Report 21782269 (Version 1)
Quarter: 2022Q4

REPORT INFORMATION
  Report Type: Spontaneous
  Country: US (occurrence: None)
  Receive Date: 20221223
  Receipt Date: 20221223
  Transmission Date: 20230113
  Serious: No
  Sender: FDA-Public Use
  Company Number: None

PATIENT
  Sex: Female

DRUGS (1)
  1. STELARA [Suspect]
     Active Substance: USTEKINUMAB
     Indication: Crohn^s disease
     Dosage: OTHER QUANTITY : 90MG/1ML;?OTHER FREQUENCY : 1 SYRING EVERY 8WK;?
     Route: 058
     Dates: start: 20220425

REACTIONS (1)
  - Drug ineffective [None]
